FAERS Safety Report 8989157 (Version 2)
Quarter: 2013Q1

REPORT INFORMATION
  Report Type: Spontaneous
  Country: FR (occurrence: None)
  Receive Date: 20121219
  Receipt Date: 20121228
  Transmission Date: 20140127
  Serious: Yes (Other)
  Sender: FDA-Public Use
  Company Number: FR-2012-4088

PATIENT
  Age: 71 Year
  Sex: Male

DRUGS (2)
  1. NAVELBINE [Suspect]
     Indication: LUNG NEOPLASM MALIGNANT
     Dosage: 30 MG/M2, D1, D8,
     Route: 042
     Dates: start: 20121122, end: 20121129
  2. CARBOPLATIN (CARBOPLATIN) [Suspect]
     Indication: LUNG NEOPLASM MALIGNANT
     Dosage: UNK, D1 EVERY 3 WEEKS,
     Route: 042
     Dates: start: 20121122, end: 20121122

REACTIONS (2)
  - Abdominal pain upper [None]
  - Aplasia [None]
